FAERS Safety Report 6993577-3 (Version None)
Quarter: 2010Q3

REPORT INFORMATION
  Report Type: 
  Country: None (occurrence: None)
  Receive Date: 20100917
  Receipt Date: 20100907
  Transmission Date: 20110219
  Serious: Yes (Other)
  Sender: FDA-Public Use
  Company Number: PHHY2010FR56514

PATIENT
  Sex: Female

DRUGS (5)
  1. ZOMETA [Suspect]
     Indication: BREAST CANCER
     Dosage: 4 MG
     Dates: start: 20100618
  2. TAXOTERE [Suspect]
     Indication: BREAST CANCER
     Dosage: 120 MG
     Dates: start: 20100618
  3. TAXOTERE [Suspect]
     Dosage: 120 MG, UNK
     Dates: start: 20100804
  4. AVASTIN [Suspect]
     Indication: BREAST CANCER
     Dosage: 250 MG
     Dates: start: 20100618
  5. MEDROL [Concomitant]
     Dosage: 32 MG/DAY
     Route: 048
     Dates: start: 20100617, end: 20100621

REACTIONS (7)
  - APHTHOUS STOMATITIS [None]
  - ERYTHEMA [None]
  - MUCOSAL INFLAMMATION [None]
  - PAIN [None]
  - PALMAR-PLANTAR ERYTHRODYSAESTHESIA SYNDROME [None]
  - SKIN EXFOLIATION [None]
  - SKIN ULCER [None]
